FAERS Safety Report 4651811-9 (Version None)
Quarter: 2005Q2

REPORT INFORMATION
  Report Type: 
  Country: None (occurrence: None)
  Receive Date: 20050504
  Receipt Date: 20050502
  Transmission Date: 20051028
  Serious: Yes (Hospitalization)
  Sender: FDA-Public Use
  Company Number: 148

PATIENT
  Age: 73 Year
  Sex: Male

DRUGS (8)
  1. MELPHALAN [Suspect]
     Indication: MULTIPLE MYELOMA
     Route: 042
     Dates: start: 20040902
  2. THALIDOMIDE [Suspect]
     Indication: MULTIPLE MYELOMA
     Route: 048
  3. VELCADE [Concomitant]
     Indication: MULTIPLE MYELOMA
  4. DEXAMETHASONE [Concomitant]
     Indication: MULTIPLE MYELOMA
  5. CISPLATIN [Concomitant]
     Indication: MULTIPLE MYELOMA
  6. ADRIAMYCIN [Concomitant]
     Indication: MULTIPLE MYELOMA
  7. ETOPOSIDE [Concomitant]
     Indication: MULTIPLE MYELOMA
  8. CYCLOPHOSPHAMIDE [Concomitant]
     Indication: MULTIPLE MYELOMA

REACTIONS (7)
  - COLITIS [None]
  - DEHYDRATION [None]
  - DIARRHOEA [None]
  - FEBRILE NEUTROPENIA [None]
  - NAUSEA [None]
  - PANCYTOPENIA [None]
  - VOMITING [None]
